FAERS Safety Report 4418573-1 (Version None)
Quarter: 2004Q3

REPORT INFORMATION
  Report Type: 
  Country: None (occurrence: None)
  Receive Date: 20040809
  Receipt Date: 20010314
  Transmission Date: 20050211
  Serious: No
  Sender: FDA-Public Use
  Company Number: US-GLAXOSMITHKLINE-A0344863A

PATIENT
  Age: 30 Year
  Sex: Male
  Weight: 104.31 kg

DRUGS (11)
  1. PAXIL [Suspect]
     Indication: DEPRESSION
     Dosage: 40MG PER DAY
     Route: 048
     Dates: end: 20010301
  2. PAXIL [Suspect]
     Dosage: 20MG PER DAY
     Route: 048
     Dates: start: 20001101
  3. PAXIL [Suspect]
     Dosage: 20MG PER DAY
     Route: 048
     Dates: start: 20010313
  4. PAXIL CR [Suspect]
     Indication: DEPRESSION
     Dosage: 50MG PER DAY
     Route: 048
     Dates: start: 20011201, end: 20040503
  5. WELLBUTRIN [Concomitant]
     Dosage: 150MG TWICE PER DAY
     Route: 048
     Dates: start: 20010101
  6. CLONIDINE HCL [Concomitant]
     Dosage: .3MG PER DAY
     Route: 048
  7. XANAX [Concomitant]
     Dosage: 1MG THREE TIMES PER DAY
  8. VIAGRA [Concomitant]
  9. YOHIMBINE [Concomitant]
  10. DIFFERIN GEL [Concomitant]
  11. CLOBETASOL [Concomitant]
     Route: 061

REACTIONS (30)
  - ABNORMAL BEHAVIOUR [None]
  - AGGRESSION [None]
  - AMNESIA [None]
  - ANXIETY [None]
  - APPETITE DISORDER [None]
  - BALANCE DISORDER [None]
  - CONSTIPATION [None]
  - DEPRESSION [None]
  - DISORIENTATION [None]
  - DISTURBANCE IN ATTENTION [None]
  - DIZZINESS [None]
  - DRUG DEPENDENCE [None]
  - DRUG INEFFECTIVE [None]
  - DRUG WITHDRAWAL SYNDROME [None]
  - ELECTRIC SHOCK [None]
  - HEADACHE [None]
  - HOT FLUSH [None]
  - IRRITABILITY [None]
  - LIBIDO DECREASED [None]
  - MOOD SWINGS [None]
  - NAUSEA [None]
  - PERSONALITY CHANGE [None]
  - PRURITUS [None]
  - PSYCHOTIC DISORDER [None]
  - SENSORY DISTURBANCE [None]
  - SLEEP DISORDER [None]
  - TEARFULNESS [None]
  - TREMOR [None]
  - VERTIGO [None]
  - WEIGHT INCREASED [None]
